FAERS Safety Report 4318386-5 (Version None)
Quarter: 2004Q1

REPORT INFORMATION
  Report Type: 
  Country: None (occurrence: None)
  Receive Date: 20040315
  Receipt Date: 20040302
  Transmission Date: 20041129
  Serious: Yes (Hospitalization)
  Sender: FDA-Public Use
  Company Number: ES-JNJFOC-20040300685

PATIENT
  Sex: Female

DRUGS (1)
  1. ORTHO EVRA [Suspect]
     Indication: CONTRACEPTION
     Dosage: 1 DOSE(S), 2 IN 4 WEEK, TRANSDERMAL
     Route: 062
     Dates: end: 20040301

REACTIONS (5)
  - DIARRHOEA [None]
  - FACE OEDEMA [None]
  - RASH [None]
  - TACHYCARDIA [None]
  - VOMITING [None]
